FAERS Safety Report 13773207 (Version 1)
Quarter: 2017Q3

REPORT INFORMATION
  Report Type: Spontaneous
  Country: FR (occurrence: FR)
  Receive Date: 20170720
  Receipt Date: 20170720
  Transmission Date: 20171127
  Serious: Yes (Hospitalization, Other)
  Sender: FDA-Public Use
  Company Number: FR-PFIZER INC-2017313213

PATIENT
  Age: 22 Year
  Sex: Male

DRUGS (6)
  1. IFOSFAMIDE. [Suspect]
     Active Substance: IFOSFAMIDE
     Dosage: 2ND COURSE
     Route: 042
     Dates: start: 20170424, end: 20170424
  2. CARBOPLATIN. [Suspect]
     Active Substance: CARBOPLATIN
     Indication: HODGKIN^S DISEASE
     Dosage: FIRST COURSE OF ICE CHEMOTHERAPY
     Route: 042
     Dates: start: 20170401, end: 20170401
  3. CARBOPLATIN. [Suspect]
     Active Substance: CARBOPLATIN
     Dosage: 2ND COURSE
     Route: 042
     Dates: start: 20170424, end: 20170424
  4. ETOPOSIDE. [Suspect]
     Active Substance: ETOPOSIDE
     Indication: HODGKIN^S DISEASE
     Dosage: FIRST COURSE OF ICE CHEMOTHERAPY
     Route: 042
     Dates: start: 20170401, end: 20170401
  5. IFOSFAMIDE. [Suspect]
     Active Substance: IFOSFAMIDE
     Indication: HODGKIN^S DISEASE
     Dosage: FIRST COURSE OF ICE CHEMOTHERAPY
     Route: 042
     Dates: start: 20170401, end: 20170401
  6. ETOPOSIDE. [Suspect]
     Active Substance: ETOPOSIDE
     Dosage: 2ND COURSE
     Route: 042
     Dates: start: 20170424, end: 20170424

REACTIONS (2)
  - Febrile bone marrow aplasia [Unknown]
  - Subcutaneous abscess [Unknown]
